FAERS Safety Report 8932289 (Version 1)
Quarter: 2012Q4

REPORT INFORMATION
  Report Type: 
  Country: DE (occurrence: DE)
  Receive Date: 20121128
  Receipt Date: 20121128
  Transmission Date: 20130627
  Serious: Yes (Hospitalization)
  Sender: FDA-Public Use
  Company Number: DE-JNJFOC-20121009947

PATIENT
  Age: 8 None
  Sex: Male
  Weight: 78 kg

DRUGS (3)
  1. ZYTIGA [Suspect]
     Indication: PROSTATE CANCER METASTATIC
     Route: 048
     Dates: start: 20120920, end: 20121018
  2. TRENANTONE [Concomitant]
     Indication: PROSTATE CANCER
     Route: 058
     Dates: start: 2008
  3. XGEVA [Concomitant]
     Indication: METASTASES TO BONE
     Route: 058

REACTIONS (3)
  - Dyspnoea [Recovering/Resolving]
  - Atrial fibrillation [Recovering/Resolving]
  - Hypertension [Recovering/Resolving]
